FAERS Safety Report 7140972-8 (Version None)
Quarter: 2010Q4

REPORT INFORMATION
  Report Type: 
  Country: None (occurrence: None)
  Receive Date: 20101201
  Receipt Date: 20101201
  Transmission Date: 20110411
  Serious: No
  Sender: FDA-Public Use
  Company Number: None

PATIENT

DRUGS (1)
  1. CLARITHROMYCIN [Suspect]
     Dosage: 20 TABLETS BOTTLE
     Dates: start: 20101111, end: 20101115

REACTIONS (8)
  - AGGRESSION [None]
  - CONFUSIONAL STATE [None]
  - DEPRESSION [None]
  - EMOTIONAL DISORDER [None]
  - HALLUCINATION [None]
  - MANIA [None]
  - NIGHTMARE [None]
  - SELF INJURIOUS BEHAVIOUR [None]
